FAERS Safety Report 4558425-X (Version None)
Quarter: 2005Q1

REPORT INFORMATION
  Report Type: 
  Country: None (occurrence: None)
  Receive Date: 20050121
  Receipt Date: 20050112
  Transmission Date: 20050727
  Serious: Yes (Other)
  Sender: FDA-Public Use
  Company Number: PHBS2005JP00857

PATIENT
  Sex: Female

DRUGS (4)
  1. PREDNISOLONE [Suspect]
     Indication: DERMATOMYOSITIS
     Dosage: 20 MG/D
     Route: 048
  2. AZATHIOPRINE [Concomitant]
     Indication: DERMATOMYOSITIS
     Dosage: 50 MG/D
     Route: 048
  3. METHOTREXATE [Suspect]
     Indication: DERMATOMYOSITIS
     Route: 065
  4. CYCLOSPORINE [Suspect]
     Indication: DERMATOMYOSITIS
     Route: 065

REACTIONS (2)
  - ANAEMIA [None]
  - GASTROINTESTINAL HAEMORRHAGE [None]
